FAERS Safety Report 9037100 (Version 4)
Quarter: 2013Q3

REPORT INFORMATION
  Report Type: Spontaneous
  Country: DE (occurrence: None)
  Receive Date: 20121207
  Receipt Date: 20130801
  Transmission Date: 20140515
  Serious: Yes (Other)
  Sender: FDA-Public Use
  Company Number: 2012034164

PATIENT
  Age: 82 Year
  Sex: Male

DRUGS (1)
  1. PRIVIGEN [Suspect]
     Indication: WALDENSTROM^S MACROGLOBULINAEMIA
     Dosage: 10 G QD, 10 G  TOTAL
     Route: 042
     Dates: start: 20121107, end: 20121107

REACTIONS (7)
  - Blood pressure decreased [None]
  - Loss of consciousness [None]
  - Vertigo [None]
  - Product used for unknown indication [None]
  - Gastritis [None]
  - Off label use [None]
  - Gastritis [None]
